FAERS Safety Report 7547516-7 (Version None)
Quarter: 2011Q2

REPORT INFORMATION
  Report Type: 
  Country: None (occurrence: None)
  Receive Date: 20110614
  Receipt Date: 20110607
  Transmission Date: 20111010
  Serious: Yes (Other)
  Sender: FDA-Public Use
  Company Number: US-PFIZER INC-2011124428

PATIENT
  Sex: Female
  Weight: 66.213 kg

DRUGS (5)
  1. TOPAMAX [Concomitant]
     Indication: MIGRAINE
     Dosage: 75MG IN MORNING AND 100MG AT NIGHT
  2. PRISTIQ [Suspect]
     Indication: MAJOR DEPRESSION
     Dosage: 50 MG, DAILY
     Route: 048
     Dates: start: 20110523
  3. PRISTIQ [Suspect]
     Indication: ANXIETY
  4. SEROQUEL [Concomitant]
     Indication: SLEEP DISORDER
     Dosage: UNK MG, UNK
  5. PROPRANOLOL [Concomitant]
     Indication: MIGRAINE
     Dosage: 10MG

REACTIONS (3)
  - INSOMNIA [None]
  - MYDRIASIS [None]
  - VISION BLURRED [None]
